FAERS Safety Report 24862629 (Version 2)
Quarter: 2025Q1

REPORT INFORMATION
  Report Type: Report from Study
  Country: CA (occurrence: CA)
  Receive Date: 20250120
  Receipt Date: 20250218
  Transmission Date: 20250409
  Serious: Yes (Other)
  Sender: GILEAD
  Company Number: CA-GLAXOSMITHKLINE-CA2022AMR084992

PATIENT
  Age: 50 Year
  Sex: Female

DRUGS (8)
  1. AMBRISENTAN [Suspect]
     Active Substance: AMBRISENTAN
     Indication: Pulmonary arterial hypertension
     Dosage: 10 MG, QD
     Route: 048
     Dates: start: 20140616
  2. AMBRISENTAN [Suspect]
     Active Substance: AMBRISENTAN
     Indication: Connective tissue disorder
  3. UPTRAVI [Suspect]
     Active Substance: SELEXIPAG
     Indication: Product used for unknown indication
     Route: 065
  4. UPTRAVI [Suspect]
     Active Substance: SELEXIPAG
     Route: 065
  5. UPTRAVI [Suspect]
     Active Substance: SELEXIPAG
     Route: 065
  6. UPTRAVI [Suspect]
     Active Substance: SELEXIPAG
     Route: 065
  7. UPTRAVI [Suspect]
     Active Substance: SELEXIPAG
     Route: 065
  8. SILDENAFIL [Concomitant]
     Active Substance: SILDENAFIL
     Indication: Pulmonary arterial hypertension

REACTIONS (16)
  - Pneumonia [Unknown]
  - Ear infection [Not Recovered/Not Resolved]
  - Sinusitis [Not Recovered/Not Resolved]
  - Upper-airway cough syndrome [Unknown]
  - Cough [Unknown]
  - Erythema [Unknown]
  - Feeling hot [Unknown]
  - Skin burning sensation [Unknown]
  - Dysmenorrhoea [Unknown]
  - Feeling cold [Unknown]
  - Diarrhoea [Recovering/Resolving]
  - Arthritis [Unknown]
  - Nausea [Unknown]
  - Bronchitis [Unknown]
  - Dyspnoea [Unknown]
  - Dyspnoea exertional [Unknown]

NARRATIVE: CASE EVENT DATE: 20220524
